FAERS Safety Report 4611579-9 (Version None)
Quarter: 2005Q1

REPORT INFORMATION
  Report Type: 
  Country: None (occurrence: None)
  Receive Date: 20050317
  Receipt Date: 20050208
  Transmission Date: 20050727
  Serious: Yes (Other)
  Sender: FDA-Public Use
  Company Number: US-GLAXOSMITHKLINE-A0544527A

PATIENT
  Age: 32 Year
  Sex: Female

DRUGS (3)
  1. WELLBUTRIN [Suspect]
     Indication: DYSTHYMIC DISORDER
     Route: 048
     Dates: start: 20041229, end: 20050124
  2. ADDERALL 10 [Suspect]
     Indication: DRUG USE FOR UNKNOWN INDICATION
  3. COLD MEDICATION [Suspect]
     Indication: DRUG USE FOR UNKNOWN INDICATION

REACTIONS (7)
  - CONFUSIONAL STATE [None]
  - DYSPHEMIA [None]
  - GRAND MAL CONVULSION [None]
  - OVERDOSE [None]
  - POSTICTAL STATE [None]
  - SLEEP DISORDER [None]
  - TONIC CLONIC MOVEMENTS [None]
